FAERS Safety Report 16819054 (Version 2)
Quarter: 2019Q3

REPORT INFORMATION
  Report Type: Report from Study
  Country: IT (occurrence: IT)
  Receive Date: 20190917
  Receipt Date: 20190926
  Transmission Date: 20191005
  Serious: Yes (Hospitalization, Other)
  Sender: FDA-Public Use
  Company Number: IT-MYLANLABS-2019M1086900

PATIENT
  Age: 87 Year
  Sex: Male

DRUGS (4)
  1. DICLOFENAC [Suspect]
     Active Substance: DICLOFENAC
     Indication: PRODUCT USED FOR UNKNOWN INDICATION
     Dosage: UNK
     Route: 048
     Dates: start: 20190324, end: 20190324
  2. IBUPROFEN. [Suspect]
     Active Substance: IBUPROFEN
     Indication: PRODUCT USED FOR UNKNOWN INDICATION
     Dosage: UNK
     Route: 048
     Dates: start: 20190324, end: 20190324
  3. PARACETAMOL [Suspect]
     Active Substance: ACETAMINOPHEN
     Indication: PRODUCT USED FOR UNKNOWN INDICATION
     Dosage: UNK
     Route: 048
     Dates: start: 20190324, end: 20190324
  4. RIVOTRIL [Suspect]
     Active Substance: CLONAZEPAM
     Indication: PRODUCT USED FOR UNKNOWN INDICATION
     Dosage: UNK
     Route: 048
     Dates: start: 20190324, end: 20190324

REACTIONS (3)
  - Toxicity to various agents [Unknown]
  - Drug abuse [Unknown]
  - Sopor [Unknown]

NARRATIVE: CASE EVENT DATE: 20190324
